FAERS Safety Report 4275173-4 (Version None)
Quarter: 2004Q1

REPORT INFORMATION
  Report Type: 
  Country: None (occurrence: None)
  Receive Date: 20040116
  Receipt Date: 20031231
  Transmission Date: 20041129
  Serious: Yes (Hospitalization)
  Sender: FDA-Public Use
  Company Number: 200314493

PATIENT
  Age: 64 Year
  Sex: Male

DRUGS (6)
  1. ALESION (EPINASTINE) [Suspect]
     Indication: PRURITUS
     Dosage: 20 MG DAILY PO
     Route: 048
     Dates: end: 20031217
  2. HERBESSOR R [Suspect]
     Indication: HYPERTENSION
     Dosage: 100 MG DAILY PO
     Route: 048
     Dates: end: 20031217
  3. DOGMATYL [Suspect]
     Indication: ANOREXIA
     Dosage: 150 MG DAILY PO
     Route: 048
     Dates: end: 20031217
  4. PROHEPARUM [Suspect]
     Indication: HEPATIC FUNCTION ABNORMAL
     Dosage: 3 DF DAILY PO
     Route: 048
     Dates: end: 20031217
  5. ZYLORIC ^GLAXO WELLCOME^ [Suspect]
     Indication: HYPERURICAEMIA
     Dosage: 200 MG DAILY PO
     Route: 048
     Dates: end: 20031217
  6. DIGOXIN [Concomitant]

REACTIONS (1)
  - RENAL FAILURE [None]
